FAERS Safety Report 8847246 (Version 1)
Quarter: 2012Q4

REPORT INFORMATION
  Report Type: 
  Country: ES (occurrence: ES)
  Receive Date: 20121018
  Receipt Date: 20121018
  Transmission Date: 20130627
  Serious: Yes (Hospitalization)
  Sender: FDA-Public Use
  Company Number: ES-MYLANLABS-2012S1020782

PATIENT
  Age: 54 Year
  Sex: Male

DRUGS (4)
  1. METFORMIN [Suspect]
     Dosage: 850mg twice daily
     Route: 065
  2. LANTUS [Concomitant]
     Route: 065
  3. VALSARTAN [Concomitant]
     Dosage: 160mg twice daily
     Route: 065
  4. AMLODIPINE [Concomitant]
     Dosage: 5mg twice daily
     Route: 065

REACTIONS (3)
  - Lactic acidosis [Recovering/Resolving]
  - Blindness transient [Recovered/Resolved]
  - Renal failure acute [Recovering/Resolving]
